FAERS Safety Report 8876361 (Version 1)
Quarter: 2012Q4

REPORT INFORMATION
  Report Type: 
  Country: CA (occurrence: CA)
  Receive Date: 20121031
  Receipt Date: 20121031
  Transmission Date: 20130627
  Serious: Yes (Other)
  Sender: FDA-Public Use
  Company Number: PHHY2004CA005713

PATIENT

DRUGS (1)
  1. SANDOSTATIN LAR [Suspect]
     Dosage: UNK
     Dates: start: 20040823

REACTIONS (9)
  - Hypotension [Unknown]
  - Hypertension [Unknown]
  - Injection site discomfort [Unknown]
  - Pharyngitis [Unknown]
  - Diarrhoea [Unknown]
  - Heart rate decreased [Unknown]
  - Hyperglycaemia [Unknown]
  - Bradycardia [Unknown]
  - Blood glucose increased [Unknown]
